FAERS Safety Report 5210239-3 (Version None)
Quarter: 2006Q4

REPORT INFORMATION
  Report Type: 
  Country: None (occurrence: None)
  Receive Date: 20061103
  Receipt Date: 20060901
  Transmission Date: 20070319
  Serious: Yes (Other)
  Sender: FDA-Public Use
  Company Number: 462141

PATIENT
  Age: 53 Year
  Sex: Female

DRUGS (2)
  1. BONIVA [Suspect]
     Indication: DRUG USE FOR UNKNOWN INDICATION
     Dosage: 3 MG INTRAVENOUS
     Route: 042
     Dates: start: 20060815
  2. PREDNISONE [Concomitant]

REACTIONS (3)
  - MYALGIA [None]
  - PAIN [None]
  - PAIN IN JAW [None]
